FAERS Safety Report 7372545-6 (Version None)
Quarter: 2011Q1

REPORT INFORMATION
  Report Type: 
  Country: None (occurrence: None)
  Receive Date: 20110315
  Receipt Date: 20110303
  Transmission Date: 20110831
  Serious: Yes (Hospitalization)
  Sender: FDA-Public Use
  Company Number: 2011PV000013

PATIENT
  Age: 63 Year
  Sex: Female
  Weight: 51 kg

DRUGS (10)
  1. ELOMEL [Concomitant]
  2. EUTHYROX [Concomitant]
  3. HYDAL [Concomitant]
  4. BISOPROLOL FUMARATE [Concomitant]
  5. ACECOMB [Concomitant]
  6. ZOFRAN [Concomitant]
  7. DEPOCYT [Suspect]
     Indication: METASTASES TO MENINGES
     Dosage: 50 MG;1X;INTH
     Route: 037
     Dates: start: 20110204, end: 20110204
  8. PANTOLOC /01263201/ [Concomitant]
  9. VERTIROSAN /00019501/ [Concomitant]
  10. FORTECORTIN /00016001/ [Concomitant]

REACTIONS (8)
  - NEOPLASM MALIGNANT [None]
  - ACTIVITIES OF DAILY LIVING IMPAIRED [None]
  - LUNG CANCER METASTATIC [None]
  - ASTHENIA [None]
  - NEUROLOGICAL DECOMPENSATION [None]
  - ABASIA [None]
  - DEHYDRATION [None]
  - DYSPHAGIA [None]
